FAERS Safety Report 8479144-3 (Version None)
Quarter: 2012Q2

REPORT INFORMATION
  Report Type: 
  Country: None (occurrence: None)
  Receive Date: 20120402
  Receipt Date: 20110714
  Transmission Date: 20120825
  Serious: Yes (Life-Threatening, Hospitalization)
  Sender: FDA-Public Use
  Company Number: 2011ST000225

PATIENT
  Age: 10 Year
  Sex: Male
  Weight: 44 kg

DRUGS (3)
  1. COTRIM [Concomitant]
  2. ONCASPAR [Suspect]
     Indication: ACUTE LYMPHOCYTIC LEUKAEMIA
     Dosage: ;X1; IV, 3300 IU;X1; IV
     Route: 042
     Dates: start: 20110707, end: 20110707
  3. ONCASPAR [Suspect]
     Indication: ACUTE LYMPHOCYTIC LEUKAEMIA
     Dosage: ;X1; IV, 3300 IU;X1; IV
     Route: 042
     Dates: start: 20110515, end: 20110515

REACTIONS (6)
  - FACE OEDEMA [None]
  - ANAPHYLACTIC REACTION [None]
  - BLOOD PRESSURE DECREASED [None]
  - URTICARIA [None]
  - WHEEZING [None]
  - VOMITING [None]
